FAERS Safety Report 22253014 (Version 1)
Quarter: 2023Q2

REPORT INFORMATION
  Report Type: Spontaneous
  Country: CA (occurrence: CA)
  Receive Date: 20230426
  Receipt Date: 20230426
  Transmission Date: 20230721
  Serious: Yes (Other)
  Sender: FDA-Public Use
  Company Number: CA-AUROBINDO-AUR-APL-2023-032784

PATIENT
  Age: 36 Year
  Sex: Female

DRUGS (2)
  1. MONTELUKAST [Suspect]
     Active Substance: MONTELUKAST SODIUM
     Indication: Asthma
     Dosage: 10 MILLIGRAM, ONCE A DAY
     Route: 048
  2. Reactine [Concomitant]
     Indication: Product used for unknown indication
     Dosage: 4 DOSAGE FORM, ONCE A DAY
     Route: 048

REACTIONS (4)
  - Urticaria [Unknown]
  - Anxiety [Unknown]
  - Depression [Unknown]
  - General physical health deterioration [Unknown]
